FAERS Safety Report 14531089 (Version 2)
Quarter: 2020Q1

REPORT INFORMATION
  Report Type: Report from Study
  Country: US (occurrence: US)
  Receive Date: 20180214
  Receipt Date: 20200106
  Transmission Date: 20200409
  Serious: Yes (Other)
  Sender: FDA-Public Use
  Company Number: US-ASTELLAS-2018US007380

PATIENT
  Age: 79 Year
  Sex: Male

DRUGS (1)
  1. ENZALUTAMIDE [Suspect]
     Active Substance: ENZALUTAMIDE
     Indication: PROSTATE CANCER
     Route: 048
     Dates: start: 20171130

REACTIONS (5)
  - Ageusia [Unknown]
  - Drug interaction [Unknown]
  - Fatigue [Unknown]
  - Chronic obstructive pulmonary disease [Unknown]
  - Decreased appetite [Unknown]

NARRATIVE: CASE EVENT DATE: 20171201
